FAERS Safety Report 5604804-9 (Version None)
Quarter: 2008Q1

REPORT INFORMATION
  Report Type: 
  Country: None (occurrence: None)
  Receive Date: 20080128
  Receipt Date: 20080115
  Transmission Date: 20080703
  Serious: Yes (Hospitalization)
  Sender: FDA-Public Use
  Company Number: US-ELI_LILLY_AND_COMPANY-US200801002869

PATIENT
  Age: 30 Year
  Sex: Male

DRUGS (5)
  1. STRATTERA [Suspect]
     Indication: ATTENTION DEFICIT/HYPERACTIVITY DISORDER
     Dosage: 40 MG, EACH MORNING
  2. STRATTERA [Suspect]
     Dosage: 25 MG, DAILY (1/D)
  3. WELLBUTRIN [Concomitant]
     Dosage: 150 MG, 2/D
  4. MULTIVIT [Concomitant]
  5. TRAZODONE HCL [Concomitant]
     Dosage: 50 MG, UNK

REACTIONS (2)
  - DEPENDENCE [None]
  - URINE AMPHETAMINE POSITIVE [None]
